FAERS Safety Report 26076140 (Version 2)
Quarter: 2025Q4

REPORT INFORMATION
  Report Type: Report from Study
  Country: US (occurrence: US)
  Receive Date: 20251121
  Receipt Date: 20251212
  Transmission Date: 20260117
  Serious: No
  Sender: DR REDDYS
  Company Number: US-DRL-USA-USA/2025/11/017157

PATIENT
  Age: 24 Year
  Sex: Female
  Weight: 80.29 kg

DRUGS (1)
  1. ACCUTANE [Suspect]
     Active Substance: ISOTRETINOIN
     Indication: Acne
     Dosage: PRESCRIBED WITH 60 MGS OF ISOTRETINOIN, 2 DOSES OF 30 MGS PER DAY
     Route: 048
     Dates: start: 20250818

REACTIONS (1)
  - Product use issue [Unknown]

NARRATIVE: CASE EVENT DATE: 20251025
